FAERS Safety Report 17687232 (Version 1)
Quarter: 2020Q2

REPORT INFORMATION
  Report Type: Spontaneous
  Country: DE (occurrence: DE)
  Receive Date: 20200421
  Receipt Date: 20200421
  Transmission Date: 20200714
  Serious: Yes (Hospitalization)
  Sender: FDA-Public Use
  Company Number: DE-009507513-2004DEU004195

PATIENT
  Age: 51 Year
  Sex: Male

DRUGS (4)
  1. CARBOPLATIN. [Suspect]
     Active Substance: CARBOPLATIN
     Dosage: 750 MG, LAST DOSE ON 05-DEC-2019
  2. PEMBROLIZUMAB. [Suspect]
     Active Substance: PEMBROLIZUMAB
     Dosage: 200 MG, LAST DOSE ON 05-DEC-2019
  3. DIPYRONE [Concomitant]
     Active Substance: DIPYRONE
     Dosage: NEED
  4. PEMETREXED DISODIUM [Suspect]
     Active Substance: PEMETREXED DISODIUM
     Dosage: 1000 MG, LAST DOSE ON 05-DEC-2019

REACTIONS (2)
  - Tachycardia [Unknown]
  - Dyspnoea [Unknown]
